FAERS Safety Report 18803006 (Version 3)
Quarter: 2021Q1

REPORT INFORMATION
  Report Type: Other
  Country: JP (occurrence: JP)
  Receive Date: 20210128
  Receipt Date: 20210225
  Transmission Date: 20210419
  Serious: Yes (Hospitalization)
  Sender: FDA-Public Use
  Company Number: JP-UROVANT SCIENCES GMBH-202101-URV-000014

PATIENT
  Age: 7 Decade
  Sex: Male

DRUGS (1)
  1. BEOVA TABLETS [Suspect]
     Active Substance: VIBEGRON
     Indication: POLLAKIURIA
     Dosage: 50 MILLIGRAM, QD
     Route: 048

REACTIONS (2)
  - Back pain [Unknown]
  - Product use issue [Unknown]
